FAERS Safety Report 25285491 (Version 1)
Quarter: 2025Q2

REPORT INFORMATION
  Report Type: Report from Study
  Country: US (occurrence: US)
  Receive Date: 20250509
  Receipt Date: 20250509
  Transmission Date: 20250717
  Serious: Yes (Hospitalization)
  Sender: ABBVIE
  Company Number: US-ABBVIE-4250271

PATIENT
  Age: 52 Year
  Sex: Male

DRUGS (4)
  1. SKYRIZI [Suspect]
     Active Substance: RISANKIZUMAB-RZAA
     Indication: Psoriasis
     Route: 058
     Dates: start: 20221021
  2. SKYRIZI [Suspect]
     Active Substance: RISANKIZUMAB-RZAA
     Route: 058
     Dates: start: 20240805, end: 20240805
  3. SKYRIZI [Suspect]
     Active Substance: RISANKIZUMAB-RZAA
     Route: 058
     Dates: start: 202409, end: 202409
  4. SKYRIZI [Suspect]
     Active Substance: RISANKIZUMAB-RZAA
     Dosage: WEEK 0?STRENGTH: 150 MILLIGRAM
     Route: 058
     Dates: start: 20241213

REACTIONS (5)
  - Cardiac stress test abnormal [Unknown]
  - Palpitations [Unknown]
  - Chest discomfort [Unknown]
  - Chest pain [Unknown]
  - Arterial spasm [Unknown]

NARRATIVE: CASE EVENT DATE: 20240101
